FAERS Safety Report 18968995 (Version 1)
Quarter: 2021Q1

REPORT INFORMATION
  Report Type: Spontaneous
  Country: FR (occurrence: FR)
  Receive Date: 20210304
  Receipt Date: 20210304
  Transmission Date: 20210420
  Serious: Yes (Hospitalization)
  Sender: FDA-Public Use
  Company Number: FR-CURIUM-2016000252

PATIENT
  Age: 76 Year
  Sex: Male

DRUGS (9)
  1. BISOPROLOL [Concomitant]
     Active Substance: BISOPROLOL
  2. CANDESARTAN. [Concomitant]
     Active Substance: CANDESARTAN
  3. METFORMIN [Concomitant]
     Active Substance: METFORMIN HYDROCHLORIDE
  4. VESICARE [Concomitant]
     Active Substance: SOLIFENACIN SUCCINATE
  5. MACROGOL [Concomitant]
     Active Substance: POLYETHYLENE GLYCOLS
  6. ZOLPIDEM [Concomitant]
     Active Substance: ZOLPIDEM TARTRATE
  7. SITAGLIPTINE [Concomitant]
     Active Substance: SITAGLIPTIN
  8. PARACETAMOL [Concomitant]
     Active Substance: ACETAMINOPHEN
  9. TECHNESCAN HDP [Suspect]
     Active Substance: TECHNETIUM TC-99M OXIDRONATE
     Indication: BONE SCAN
     Dosage: ONE SINGLE DOSE
     Route: 042
     Dates: start: 20160606, end: 20160606

REACTIONS (3)
  - Thrombocytopenia [Recovered/Resolved]
  - Bullous haemorrhagic dermatosis [Unknown]
  - Petechiae [Unknown]

NARRATIVE: CASE EVENT DATE: 20160607
